FAERS Safety Report 20949956 (Version 1)
Quarter: 2022Q2

REPORT INFORMATION
  Report Type: Spontaneous
  Country: US (occurrence: None)
  Receive Date: 20220610
  Receipt Date: 20220610
  Transmission Date: 20220721
  Serious: Yes (Death)
  Sender: FDA-Public Use
  Company Number: None

PATIENT
  Age: 59 Year
  Sex: Male

DRUGS (14)
  1. CAPECITABINE [Suspect]
     Active Substance: CAPECITABINE
     Indication: Oesophageal carcinoma
     Dosage: FREQUENCY : TWICE A DAY;?
     Route: 048
  2. DILTIAZEM [Concomitant]
     Active Substance: DILTIAZEM
  3. ENOXAPARIN [Concomitant]
     Active Substance: ENOXAPARIN
  4. ALLOPURINOL [Concomitant]
     Active Substance: ALLOPURINOL
  5. VITAMINS [Concomitant]
     Active Substance: VITAMINS
  6. L FOLIC ACID [Concomitant]
  7. ALBUTEROL [Concomitant]
  8. IPRATROPIUM [Concomitant]
     Active Substance: IPRATROPIUM
  9. LISINOPRIL [Concomitant]
     Active Substance: LISINOPRIL
  10. MIRTAZAPINE [Concomitant]
     Active Substance: MIRTAZAPINE
  11. NICOTINE TRANSDERMAL SYSTEM [Concomitant]
     Active Substance: NICOTINE
  12. ONDANSETRON [Concomitant]
     Active Substance: ONDANSETRON
  13. PANTOPRAZOLE [Concomitant]
     Active Substance: PANTOPRAZOLE
  14. MAGNESIUM OXIDE [Concomitant]
     Active Substance: MAGNESIUM OXIDE

REACTIONS (1)
  - Death [None]
